FAERS Safety Report 5475067-2 (Version None)
Quarter: 2007Q4

REPORT INFORMATION
  Report Type: 
  Country: None (occurrence: None)
  Receive Date: 20071002
  Receipt Date: 20070830
  Transmission Date: 20080405
  Serious: Yes (Hospitalization, Other)
  Sender: FDA-Public Use
  Company Number: BR-PFIZER INC-2007073387

PATIENT
  Sex: Female
  Weight: 65 kg

DRUGS (5)
  1. DEPO-PROVERA SUSPENSION/INJ [Suspect]
     Indication: UTERINE HAEMORRHAGE
     Route: 030
     Dates: start: 20070301, end: 20070301
  2. DEPO-PROVERA SUSPENSION/INJ [Suspect]
     Dosage: FREQ:MOST RECENT INJECTION
     Route: 030
     Dates: start: 20070828, end: 20070828
  3. HYDROCHLOROTHIAZIDE [Concomitant]
     Indication: HYPERTENSION
     Dosage: DAILY DOSE:25MG
     Route: 048
  4. CAPTOPRIL [Concomitant]
     Indication: HYPERTENSION
     Route: 048
  5. ATENOLOL [Concomitant]
     Indication: HYPERTENSION
     Dosage: DAILY DOSE:50MG
     Route: 048

REACTIONS (2)
  - DIABETES MELLITUS [None]
  - DIARRHOEA [None]
